FAERS Safety Report 10652540 (Version 3)
Quarter: 2015Q1

REPORT INFORMATION
  Report Type: Spontaneous
  Country: US (occurrence: US)
  Receive Date: 20141215
  Receipt Date: 20150213
  Transmission Date: 20150720
  Serious: No
  Sender: FDA-Public Use
  Company Number: US-BAYER-2014-182442

PATIENT
  Age: 28 Year
  Sex: Female

DRUGS (2)
  1. TRICYCLEN [Concomitant]
     Active Substance: ETHINYL ESTRADIOL\NORGESTIMATE
     Indication: CONTRACEPTION
     Dosage: UNK
     Dates: start: 201410
  2. MIRENA [Suspect]
     Active Substance: LEVONORGESTREL
     Indication: CONTRACEPTION
     Dosage: 20 MCG/24HR, CONT
     Route: 015
     Dates: start: 2011, end: 20141205

REACTIONS (4)
  - Vaginal haemorrhage [Unknown]
  - Product use issue [Unknown]
  - Procedural pain [Unknown]
  - Procedural pain [Unknown]

NARRATIVE: CASE EVENT DATE: 2014
